FAERS Safety Report 21870182 (Version 3)
Quarter: 2023Q1

REPORT INFORMATION
  Report Type: Report from Study
  Country: US (occurrence: US)
  Receive Date: 20230117
  Receipt Date: 20230328
  Transmission Date: 20230418
  Serious: No
  Sender: FDA-Public Use
  Company Number: US-ABBVIE-4249092

PATIENT
  Sex: Female
  Weight: 91 kg

DRUGS (3)
  1. HUMIRA [Suspect]
     Active Substance: ADALIMUMAB
     Indication: Psoriatic arthropathy
     Dosage: CITRATE FREE?FORM STRENGTH: 40 MILLIGRAM
     Route: 058
     Dates: start: 20230105
  2. HUMIRA [Suspect]
     Active Substance: ADALIMUMAB
     Indication: Rheumatoid arthritis
     Dosage: CITRATE FREE?FORM STRENGTH: 40 MILLIGRAM
     Route: 058
     Dates: start: 2016, end: 2018
  3. PROPRANOLOL [Concomitant]
     Active Substance: PROPRANOLOL HYDROCHLORIDE
     Indication: Heart rate increased

REACTIONS (13)
  - Nervous system disorder [Unknown]
  - Limb injury [Recovered/Resolved]
  - Balance disorder [Recovering/Resolving]
  - Tremor [Recovering/Resolving]
  - Ankle fracture [Recovered/Resolved]
  - Dizziness [Recovering/Resolving]
  - Fall [Recovered/Resolved]
  - Lower limb fracture [Recovered/Resolved]
  - Memory impairment [Recovering/Resolving]
  - Adverse drug reaction [Unknown]
  - Blood cholesterol abnormal [Unknown]
  - Depression [Unknown]
  - Migraine [Unknown]

NARRATIVE: CASE EVENT DATE: 20180101
